FAERS Safety Report 10023627 (Version 2)
Quarter: 2014Q1

REPORT INFORMATION
  Report Type: Spontaneous
  Country: US (occurrence: US)
  Receive Date: 20140320
  Receipt Date: 20140320
  Transmission Date: 20141002
  Serious: Yes (Other)
  Sender: FDA-Public Use
  Company Number: US-JNJFOC-20131112612

PATIENT
  Sex: Male

DRUGS (3)
  1. RISPERDAL [Suspect]
     Indication: AFFECTIVE DISORDER
     Route: 048
     Dates: start: 2003, end: 2004
  2. RISPERDAL [Suspect]
     Indication: ASPERGER^S DISORDER
     Route: 048
     Dates: start: 2003, end: 2004
  3. TENEX [Suspect]
     Indication: ATTENTION DEFICIT/HYPERACTIVITY DISORDER
     Route: 065

REACTIONS (9)
  - Glucose tolerance impaired [Unknown]
  - Obesity [Unknown]
  - Tardive dyskinesia [Unknown]
  - Aggression [Unknown]
  - Gynaecomastia [Unknown]
  - Emotional disorder [Unknown]
  - Blood prolactin increased [Unknown]
  - Fear [Unknown]
  - Migraine [Unknown]
